FAERS Safety Report 9768921 (Version 2)
Quarter: 2013Q4

REPORT INFORMATION
  Report Type: Spontaneous
  Country: FR (occurrence: None)
  Receive Date: 20131206
  Receipt Date: 20131213
  Transmission Date: 20140711
  Serious: Yes (Hospitalization)
  Sender: FDA-Public Use
  Company Number: FK201305110

PATIENT
  Age: 40 Year
  Sex: Female

DRUGS (7)
  1. VOLUVEN [Suspect]
     Indication: POSTPARTUM HAEMORRHAGE
     Dosage: 1.5 LIT, 1 IN 1 TOTAL, INTRAVENOUS (NOT OTHERWISE SPECIFIED)
     Route: 042
     Dates: start: 20131021, end: 20131021
  2. EXACYL (TRANEXAMIC ACID) (TRANEXAMIC ACID) [Suspect]
     Indication: POSTPARTUM HAEMORRHAGE
     Dosage: 0.5 G/5 ML, INTRAVENOUS  (NOT OTHERWISE SPECIFIED)
     Route: 042
     Dates: start: 20131021, end: 20131021
  3. CLOTTAFACT [Suspect]
     Indication: POSTPARTUM HAEMORRHAGE
     Dosage: 4.5 GM, 1.5G/100 ML, INTRAVENOUS  (NOT OTHERWISE SPECIFIED)?
     Route: 042
     Dates: start: 20131021, end: 20131021
  4. NALADOR [Suspect]
     Indication: PLACENTA PRAEVIA HAEMORRHAGE
     Dosage: 2 DOSAGE FORMS   (NOT OTHERWISE SPECIFIED)
     Route: 042
     Dates: start: 20131021, end: 20131021
  5. RINGER^S LACTATE (FLEBOBAG RING LACT)(FLEBOBAG RING LACT) [Concomitant]
  6. LASILIX (FUROSEMIDE) [Concomitant]
  7. SYNTOCINON (OXYTOCIN) [Concomitant]

REACTIONS (18)
  - Renal failure acute [None]
  - Blood pressure increased [None]
  - Metabolic acidosis [None]
  - Thrombocytopenia [None]
  - Aspartate aminotransferase increased [None]
  - Alanine aminotransferase increased [None]
  - Pre-eclampsia [None]
  - HELLP syndrome [None]
  - Microangiopathy [None]
  - Headache [None]
  - Nausea [None]
  - Vomiting [None]
  - Vitreous floaters [None]
  - Renal cortical necrosis [None]
  - Blood bilirubin increased [None]
  - Blood creatine phosphokinase increased [None]
  - Haemoglobin decreased [None]
  - Blood lactate dehydrogenase increased [None]
